FAERS Safety Report 6295942-9 (Version None)
Quarter: 2009Q3

REPORT INFORMATION
  Report Type: 
  Country: None (occurrence: None)
  Receive Date: 20090804
  Receipt Date: 20090727
  Transmission Date: 20100115
  Serious: Yes (Other)
  Sender: FDA-Public Use
  Company Number: US-AMGEN-QUU357516

PATIENT
  Sex: Female

DRUGS (2)
  1. ENBREL [Suspect]
     Indication: DRUG USE FOR UNKNOWN INDICATION
     Route: 058
     Dates: start: 20090602
  2. METHOTREXATE [Concomitant]

REACTIONS (4)
  - BRONCHITIS [None]
  - CHEST X-RAY ABNORMAL [None]
  - INJECTION SITE HAEMATOMA [None]
  - RASH ERYTHEMATOUS [None]
